FAERS Safety Report 9100864 (Version 1)
Quarter: 2013Q1

REPORT INFORMATION
  Report Type: Spontaneous
  Country: US (occurrence: None)
  Receive Date: 20130220
  Receipt Date: 20130220
  Transmission Date: 20140127
  Serious: Yes (Life-Threatening)
  Sender: FDA-Public Use
  Company Number: None

PATIENT
  Age: 61 Year
  Sex: Female
  Weight: 81.65 kg

DRUGS (2)
  1. PEPCID 40 MG. [Suspect]
     Indication: GASTROOESOPHAGEAL REFLUX DISEASE
     Dosage: ONCE AT NIGHT   PO
     Route: 048
     Dates: start: 20121029, end: 20121115
  2. PEPCID 40 MG. [Suspect]
     Indication: HERNIA
     Dosage: ONCE AT NIGHT   PO
     Route: 048
     Dates: start: 20121029, end: 20121115

REACTIONS (1)
  - Pneumonia [None]
